FAERS Safety Report 16575845 (Version 2)
Quarter: 2019Q3

REPORT INFORMATION
  Report Type: Spontaneous
  Country: CN (occurrence: CN)
  Receive Date: 20190716
  Receipt Date: 20190816
  Transmission Date: 20191004
  Serious: Yes (Other)
  Sender: FDA-Public Use
  Company Number: CN-GILEAD-2019-0418229

PATIENT
  Age: 44 Year
  Sex: Male

DRUGS (1)
  1. EPCLUSA [Suspect]
     Active Substance: SOFOSBUVIR\VELPATASVIR
     Indication: CHRONIC HEPATITIS C
     Dosage: 1 DOSAGE FORM, UNK
     Route: 048
     Dates: start: 20190131, end: 20190430

REACTIONS (4)
  - Treatment failure [Not Recovered/Not Resolved]
  - Hepatitis C [Not Recovered/Not Resolved]
  - Genotype drug resistance test positive [Unknown]
  - Alanine aminotransferase increased [Not Recovered/Not Resolved]

NARRATIVE: CASE EVENT DATE: 20190628
